FAERS Safety Report 21600644 (Version 5)
Quarter: 2022Q4

REPORT INFORMATION
  Report Type: Other
  Country: CA (occurrence: None)
  Receive Date: 20221116
  Receipt Date: 20221218
  Transmission Date: 20230113
  Serious: Yes (Hospitalization, Other)
  Sender: FDA-Public Use
  Company Number: CA-ROCHE-3057948

PATIENT
  Age: 41 Year
  Sex: Female

DRUGS (5)
  1. OCREVUS [Suspect]
     Active Substance: OCRELIZUMAB
     Indication: Relapsing-remitting multiple sclerosis
     Dosage: 300 MG AT DAY 0 AND 14, THEN 600 MG EVERY 6 MONTH
     Route: 042
     Dates: start: 20190827
  2. OCREVUS [Suspect]
     Active Substance: OCRELIZUMAB
     Dosage: 30MG/ML
     Route: 042
     Dates: start: 20210921
  3. CEFTRIAXONE [Concomitant]
     Active Substance: CEFTRIAXONE
  4. AMPICILLIN [Concomitant]
     Active Substance: AMPICILLIN
  5. CEPHALEXIN [Concomitant]
     Active Substance: CEPHALEXIN
     Indication: Post procedural infection

REACTIONS (4)
  - Abdominal pain [Not Recovered/Not Resolved]
  - Nephrolithiasis [Recovered/Resolved]
  - Post procedural infection [Unknown]
  - Kidney infection [Recovered/Resolved]

NARRATIVE: CASE EVENT DATE: 20220930
